FAERS Safety Report 21784130 (Version 1)
Quarter: 2022Q4

REPORT INFORMATION
  Report Type: Report from Study
  Country: US (occurrence: US)
  Receive Date: 20221227
  Receipt Date: 20221227
  Transmission Date: 20230113
  Serious: Yes (Other)
  Sender: FDA-Public Use
  Company Number: US-BAYER-2022P032479

PATIENT
  Sex: Male

DRUGS (2)
  1. ASPIRIN [Interacting]
     Active Substance: ASPIRIN
  2. ENOXAPARIN [Interacting]
     Active Substance: ENOXAPARIN

REACTIONS (2)
  - Post procedural haematoma [None]
  - Labelled drug-drug interaction issue [None]
